FAERS Safety Report 5197888-6 (Version None)
Quarter: 2006Q4

REPORT INFORMATION
  Report Type: 
  Country: None (occurrence: None)
  Receive Date: 20061228
  Receipt Date: 20061219
  Transmission Date: 20070319
  Serious: Yes (Death, Other)
  Sender: FDA-Public Use
  Company Number: 163-21880-06090876

PATIENT
  Age: 63 Year
  Sex: Male

DRUGS (8)
  1. REVLIMID [Suspect]
     Indication: MYELODYSPLASTIC SYNDROME
     Dosage: 5 MG, 1 IN 1 D, ORAL
     Route: 048
     Dates: start: 20060501, end: 20060518
  2. TYLENOL (PRACETAMOL) [Concomitant]
  3. CENTRUM SILVER (CENTRUM SILVER) [Concomitant]
  4. IMODIUM [Concomitant]
  5. NEXIUM [Concomitant]
  6. OXYCONTIN [Concomitant]
  7. COMPAZINE [Concomitant]
  8. ATIVAN [Concomitant]

REACTIONS (8)
  - ACUTE MYELOID LEUKAEMIA [None]
  - CARDIAC FAILURE CONGESTIVE [None]
  - DISEASE PROGRESSION [None]
  - GENERALISED OEDEMA [None]
  - MYELODYSPLASTIC SYNDROME [None]
  - NEOPLASM PROGRESSION [None]
  - PERICARDIAL EFFUSION [None]
  - THROMBOCYTOPENIA [None]
